FAERS Safety Report 4518150-8 (Version None)
Quarter: 2004Q4

REPORT INFORMATION
  Report Type: 
  Country: None (occurrence: None)
  Receive Date: 20041130
  Receipt Date: 20041119
  Transmission Date: 20050328
  Serious: Yes (Hospitalization)
  Sender: FDA-Public Use
  Company Number: 2004S1000107

PATIENT
  Age: 42 Year
  Sex: Male
  Weight: 60.3284 kg

DRUGS (1)
  1. OXANDRIN [Suspect]
     Indication: WEIGHT DECREASED
     Dosage: 5 MG;BID;PO
     Route: 048
     Dates: start: 20040601

REACTIONS (4)
  - BLOOD CREATININE INCREASED [None]
  - BLOOD UREA INCREASED [None]
  - DEHYDRATION [None]
  - DEMENTIA [None]
